FAERS Safety Report 5793362-4 (Version None)
Quarter: 2008Q2

REPORT INFORMATION
  Report Type: 
  Country: None (occurrence: None)
  Receive Date: 20080627
  Receipt Date: 20080624
  Transmission Date: 20081010
  Serious: Yes (Hospitalization)
  Sender: FDA-Public Use
  Company Number: B0526472A

PATIENT
  Age: 57 Year
  Sex: Male

DRUGS (5)
  1. AMOXICILLIN [Suspect]
     Indication: DRUG USE FOR UNKNOWN INDICATION
     Route: 048
     Dates: start: 20071024, end: 20071102
  2. AUGMENTIN '125' [Suspect]
     Indication: DRUG USE FOR UNKNOWN INDICATION
     Route: 048
     Dates: start: 20071102, end: 20071104
  3. ACETAMINOPHEN [Concomitant]
     Indication: DRUG USE FOR UNKNOWN INDICATION
     Route: 065
  4. ULTRALEVURE [Concomitant]
     Indication: DRUG USE FOR UNKNOWN INDICATION
     Route: 065
  5. MUXOL [Concomitant]
     Indication: DRUG USE FOR UNKNOWN INDICATION
     Route: 065

REACTIONS (9)
  - COUGH [None]
  - EOSINOPHILIA [None]
  - FACE OEDEMA [None]
  - LEUKOCYTOSIS [None]
  - ODYNOPHAGIA [None]
  - PYREXIA [None]
  - RASH MACULO-PAPULAR [None]
  - SKIN LESION [None]
  - TREATMENT FAILURE [None]
